FAERS Safety Report 4645029-3 (Version None)
Quarter: 2005Q2

REPORT INFORMATION
  Report Type: 
  Country: None (occurrence: None)
  Receive Date: 20050426
  Receipt Date: 20050208
  Transmission Date: 20051028
  Serious: Yes (Hospitalization)
  Sender: FDA-Public Use
  Company Number: FR-ROCHE-395088

PATIENT
  Age: 39 Year
  Sex: Female
  Weight: 69 kg

DRUGS (8)
  1. CYMEVAN [Suspect]
     Route: 065
     Dates: end: 20041202
  2. CELLCEPT [Concomitant]
     Indication: RENAL TRANSPLANT
     Dosage: AT DISCHARGE.
     Route: 065
     Dates: end: 20041202
  3. BACTRIM [Concomitant]
     Route: 065
     Dates: end: 20041202
  4. NEORECORMON [Concomitant]
     Indication: DRUG USE FOR UNKNOWN INDICATION
     Dosage: FORMULATION REPORTED AS INJECTABLE SOLUTION.
     Route: 065
  5. FORTUM [Concomitant]
  6. TENORMIN [Concomitant]
  7. CORTANCYL [Concomitant]
     Dosage: DOSAGE REGIMEN REPORTED AS 60 MG.
  8. PROGRAF [Concomitant]

REACTIONS (1)
  - AGRANULOCYTOSIS [None]
